FAERS Safety Report 15609543 (Version 4)
Quarter: 2021Q1

REPORT INFORMATION
  Report Type: Spontaneous
  Country: US (occurrence: US)
  Receive Date: 20181112
  Receipt Date: 20210123
  Transmission Date: 20210419
  Serious: No
  Sender: FDA-Public Use
  Company Number: US-SHIRE-US201844181

PATIENT
  Age: 55 Year
  Sex: Female

DRUGS (2)
  1. HAEGARDA [Concomitant]
     Active Substance: HUMAN C1-ESTERASE INHIBITOR
     Indication: HEREDITARY ANGIOEDEMA
  2. TAKHZYRO [Suspect]
     Active Substance: LANADELUMAB-FLYO
     Indication: PRODUCT USED FOR UNKNOWN INDICATION
     Dosage: 300MG/2ML, 1X/2WKS
     Route: 058
     Dates: start: 20181016, end: 20181024

REACTIONS (2)
  - Rash [Not Recovered/Not Resolved]
  - Dizziness [None]

NARRATIVE: CASE EVENT DATE: 20181016
